FAERS Safety Report 7087913-X (Version None)
Quarter: 2010Q4

REPORT INFORMATION
  Report Type: 
  Country: None (occurrence: None)
  Receive Date: 20101108
  Receipt Date: 20101026
  Transmission Date: 20110411
  Serious: Yes (Other)
  Sender: FDA-Public Use
  Company Number: US-US-EMD SERONO, INC.-7024704

PATIENT
  Sex: Male

DRUGS (1)
  1. REBIF [Suspect]
     Indication: MULTIPLE SCLEROSIS
     Route: 058
     Dates: start: 20091112, end: 20101019

REACTIONS (5)
  - ABASIA [None]
  - HALLUCINATION [None]
  - MENTAL DISORDER [None]
  - SUICIDAL IDEATION [None]
  - TREMOR [None]
